FAERS Safety Report 8090100-X (Version None)
Quarter: 2012Q1

REPORT INFORMATION
  Report Type: 
  Country: None (occurrence: None)
  Receive Date: 20120129
  Receipt Date: 20111031
  Transmission Date: 20120608
  Serious: No
  Sender: FDA-Public Use
  Company Number: US-ABBOTT-11P-163-0869873-00

PATIENT
  Age: 51 Year
  Sex: Female

DRUGS (3)
  1. HUMIRA [Suspect]
     Indication: ANKYLOSING SPONDYLITIS
  2. UNKNOWN MEDICATIONS [Concomitant]
     Indication: SUPPLEMENTATION THERAPY
  3. CONTRACEPTIVES [Concomitant]
     Indication: CONTRACEPTION

REACTIONS (4)
  - ARTHRALGIA [None]
  - FATIGUE [None]
  - INFLAMMATION [None]
  - WRONG TECHNIQUE IN DRUG USAGE PROCESS [None]
